FAERS Safety Report 17250887 (Version 1)
Quarter: 2020Q1

REPORT INFORMATION
  Report Type: Spontaneous
  Country: DE (occurrence: DE)
  Receive Date: 20200109
  Receipt Date: 20200109
  Transmission Date: 20200409
  Serious: Yes (Other)
  Sender: FDA-Public Use
  Company Number: DE-AMGEN-DEUSP2019200695

PATIENT
  Age: 84 Year
  Sex: Female

DRUGS (4)
  1. IMLYGIC [Suspect]
     Active Substance: TALIMOGENE LAHERPAREPVEC
     Dosage: UNK (10^8 PFU/ML)
     Route: 026
     Dates: start: 20190705, end: 20191128
  2. PREDNISOLUT [PREDNISOLONE HEMISUCCINATE] [Concomitant]
     Indication: PROPHYLAXIS
     Dosage: 250 MILLIGRAM
     Route: 042
     Dates: start: 2019
  3. IMLYGIC [Suspect]
     Active Substance: TALIMOGENE LAHERPAREPVEC
     Indication: METASTATIC MALIGNANT MELANOMA
     Dosage: UNK (10^6 PFU/ML)
     Route: 026
     Dates: start: 20190614, end: 20190614
  4. FENISTIL [Concomitant]
     Active Substance: DIMETHINDENE
     Indication: PROPHYLAXIS
     Dosage: UNK (1 AMPOULE)
     Route: 042
     Dates: start: 2019

REACTIONS (7)
  - Somnolence [Recovered/Resolved]
  - Rash papular [Recovered/Resolved]
  - Nausea [Recovered/Resolved]
  - Dizziness [Recovered/Resolved]
  - Influenza like illness [Recovered/Resolved]
  - Vomiting [Recovered/Resolved]
  - Pyrexia [Recovered/Resolved]

NARRATIVE: CASE EVENT DATE: 20190614
